FAERS Safety Report 4560984-8 (Version None)
Quarter: 2005Q1

REPORT INFORMATION
  Report Type: 
  Country: None (occurrence: None)
  Receive Date: 20050126
  Receipt Date: 20040503
  Transmission Date: 20050727
  Serious: No
  Sender: FDA-Public Use
  Company Number: US-BRISTOL-MYERS SQUIBB COMPANY-12577037

PATIENT
  Age: 60 Year
  Sex: Male

DRUGS (3)
  1. GLUCOPHAGE [Suspect]
     Indication: DIABETES MELLITUS
     Dosage: THERAPY DATES:  ^SUMMER 2003 AND FALL 2003^
  2. ACTOS [Suspect]
     Indication: DIABETES MELLITUS
     Dosage: DOSE:  40-45 MILLIGRAMS;  THERAPY DURATION:  ^APPROXIMATELY 1 YEAR^
  3. GLYBURIDE [Concomitant]

REACTIONS (6)
  - ABDOMINAL DISTENSION [None]
  - BLOOD GLUCOSE INCREASED [None]
  - NAUSEA [None]
  - OEDEMA [None]
  - TOOTH LOSS [None]
  - WEIGHT INCREASED [None]
